FAERS Safety Report 13260465 (Version 1)
Quarter: 2017Q1

REPORT INFORMATION
  Report Type: Spontaneous
  Country: US (occurrence: US)
  Receive Date: 20170221
  Receipt Date: 20170221
  Transmission Date: 20170428
  Serious: Yes (Hospitalization)
  Sender: FDA-Public Use
  Company Number: None

PATIENT
  Age: 53 Year
  Sex: Male
  Weight: 94.6 kg

DRUGS (4)
  1. NATALIZUMAB 300MG BIOGEN IDEC, INC [Suspect]
     Active Substance: NATALIZUMAB
     Indication: ACUTE GRAFT VERSUS HOST DISEASE
     Route: 042
     Dates: start: 20170119, end: 20170203
  2. CIDOFOVIR. [Concomitant]
     Active Substance: CIDOFOVIR
  3. OXYBUTYNIN [Concomitant]
     Active Substance: OXYBUTYNIN
  4. DILAUDID [Concomitant]
     Active Substance: HYDROMORPHONE HYDROCHLORIDE

REACTIONS (4)
  - Frequent bowel movements [None]
  - Dysuria [None]
  - Haematuria [None]
  - Rash [None]

NARRATIVE: CASE EVENT DATE: 20170220
